FAERS Safety Report 5197544-4 (Version None)
Quarter: 2007Q1

REPORT INFORMATION
  Report Type: 
  Country: None (occurrence: None)
  Receive Date: 20070103
  Receipt Date: 20061222
  Transmission Date: 20070707
  Serious: Yes (Other)
  Sender: FDA-Public Use
  Company Number: DE-PFIZER INC-2006147185

PATIENT
  Sex: Female

DRUGS (3)
  1. LYRICA [Suspect]
     Indication: HERPES ZOSTER
     Route: 048
     Dates: start: 20061113, end: 20061130
  2. TRAMADOL HCL [Concomitant]
  3. SOTALOL HCL [Concomitant]

REACTIONS (4)
  - BLOOD PRESSURE INCREASED [None]
  - HOT FLUSH [None]
  - HYPERTHYROIDISM [None]
  - THYROID NEOPLASM [None]
